FAERS Safety Report 6695159-X (Version None)
Quarter: 2010Q2

REPORT INFORMATION
  Report Type: 
  Country: None (occurrence: None)
  Receive Date: 20100423
  Receipt Date: 20100423
  Transmission Date: 20101027
  Serious: Yes (Hospitalization)
  Sender: FDA-Public Use
  Company Number: US-ROXANE LABORATORIES, INC.-2010-RO-00462RO

PATIENT
  Sex: Female

DRUGS (8)
  1. MORPHINE [Suspect]
     Indication: BACK PAIN
     Dosage: 30 MG
     Route: 048
     Dates: start: 20100327
  2. VEGF TRAP-EYE [Suspect]
     Indication: MACULAR DEGENERATION
     Dates: start: 20080812
  3. RANIBIZUMAB [Suspect]
     Indication: MACULAR DEGENERATION
     Dates: start: 20080812
  4. TEMAZEPAM [Suspect]
     Indication: SLEEP DISORDER
     Dosage: 30 MG
     Route: 048
     Dates: start: 20070101, end: 20100401
  5. HYDROCODONE BITARTRATE [Concomitant]
     Indication: BACK PAIN
     Route: 048
     Dates: start: 20070101, end: 20100310
  6. BENADRYL [Concomitant]
     Indication: SEASONAL ALLERGY
     Route: 048
     Dates: start: 20080804
  7. FLAXSEED OIL [Concomitant]
     Indication: ROUTINE HEALTH MAINTENANCE
     Route: 048
     Dates: start: 20081119
  8. SOMA [Concomitant]
     Indication: BACK PAIN
     Dosage: 1400 MG
     Route: 048
     Dates: start: 20100219

REACTIONS (2)
  - DIZZINESS [None]
  - LOSS OF CONSCIOUSNESS [None]
